FAERS Safety Report 7189078-2 (Version None)
Quarter: 2010Q4

REPORT INFORMATION
  Report Type: 
  Country: None (occurrence: None)
  Receive Date: 20101222
  Receipt Date: 20101213
  Transmission Date: 20110411
  Serious: Yes (Other)
  Sender: FDA-Public Use
  Company Number: US-MYLANLABS-2010S1022882

PATIENT
  Sex: Female

DRUGS (2)
  1. AMNESTEEM [Suspect]
     Indication: ACNE CYSTIC
     Route: 048
     Dates: start: 20100801, end: 20101206
  2. CONTRACEPTIVE [Concomitant]
     Dosage: IUD, FOR PREGNANCY PREVENTION

REACTIONS (1)
  - THYROID CANCER [None]
